FAERS Safety Report 5283364-9 (Version None)
Quarter: 2007Q1

REPORT INFORMATION
  Report Type: 
  Country: None (occurrence: None)
  Receive Date: 20070328
  Receipt Date: 20070328
  Transmission Date: 20070707
  Serious: Yes (Hospitalization)
  Sender: FDA-Public Use
  Company Number: None

PATIENT
  Sex: Female
  Weight: 59.6 kg

DRUGS (4)
  1. ZORBTIVE [SOMATROPIN (RDNA ORIGIN)] [Suspect]
     Indication: SHORT-BOWEL SYNDROME
     Dosage: 6.0 MG QD SA
     Dates: start: 20070303, end: 20070319
  2. PROTONIX [Concomitant]
  3. ZELNORM [Concomitant]
  4. IMODIUM [Concomitant]

REACTIONS (2)
  - BACK PAIN [None]
  - PANCREATITIS [None]
